FAERS Safety Report 8451760-4 (Version None)
Quarter: 2012Q2

REPORT INFORMATION
  Report Type: 
  Country: None (occurrence: None)
  Receive Date: 20120620
  Receipt Date: 20120316
  Transmission Date: 20120825
  Serious: No
  Sender: FDA-Public Use
  Company Number: US-VERTEX PHARMACEUTICALS INC.-AE-2012-003839

PATIENT
  Sex: Female
  Weight: 65.83 kg

DRUGS (8)
  1. QVAR 40 [Concomitant]
  2. NASONEX [Concomitant]
  3. RIBAVIRIN [Concomitant]
     Indication: HEPATITIS C
     Dates: start: 20120224
  4. INCIVEK [Suspect]
     Indication: HEPATITIS C
     Route: 048
     Dates: start: 20120224
  5. SYNTHROID [Concomitant]
  6. PEGASYS [Concomitant]
     Indication: HEPATITIS C
     Route: 058
     Dates: start: 20120224
  7. VENTOLIN [Concomitant]
  8. NEXIUM [Concomitant]

REACTIONS (7)
  - DIZZINESS [None]
  - HYPERSOMNIA [None]
  - BLOOD POTASSIUM DECREASED [None]
  - DYSGEUSIA [None]
  - FATIGUE [None]
  - DIARRHOEA [None]
  - APTYALISM [None]
